FAERS Safety Report 7207327-9 (Version None)
Quarter: 2011Q1

REPORT INFORMATION
  Report Type: 
  Country: None (occurrence: None)
  Receive Date: 20110103
  Receipt Date: 20101230
  Transmission Date: 20110831
  Serious: Yes (Hospitalization)
  Sender: FDA-Public Use
  Company Number: DE-BRISTOL-MYERS SQUIBB COMPANY-15395874

PATIENT
  Age: 69 Year
  Sex: Male
  Weight: 55 kg

DRUGS (2)
  1. ASPIRIN [Concomitant]
     Indication: CEREBROVASCULAR ACCIDENT
     Dosage: TREATMENT DURATION:01APR10
     Route: 048
  2. LITALIR CAPS [Suspect]
     Indication: POLYCYTHAEMIA VERA
     Dosage: 1 DF:ONE CAPSULE  AT TOTAL OF TWO RE-EXPOSITIONS.

REACTIONS (5)
  - DIZZINESS [None]
  - NAUSEA [None]
  - FATIGUE [None]
  - PYREXIA [None]
  - CONFUSIONAL STATE [None]
